FAERS Safety Report 8903544 (Version 1)
Quarter: 2012Q4

REPORT INFORMATION
  Report Type: 
  Country: DE (occurrence: DE)
  Receive Date: 20121113
  Receipt Date: 20121113
  Transmission Date: 20130627
  Serious: Yes (Other)
  Sender: FDA-Public Use
  Company Number: DE-WATSON-2012-18941

PATIENT
  Sex: Female
  Weight: 3.3 kg

DRUGS (1)
  1. TOPIRAMATE [Suspect]
     Indication: EPILEPSY
     Dosage: ^125 [mg/d (50-0-75) ]^ ]
     Route: 064

REACTIONS (6)
  - Grand mal convulsion [Recovered/Resolved]
  - Maternal drugs affecting foetus [None]
  - Caesarean section [None]
  - Foetal heart rate deceleration [None]
  - Hypocalcaemia [None]
  - Atrioventricular block first degree [None]
